FAERS Safety Report 10399026 (Version 1)
Quarter: 2014Q3

REPORT INFORMATION
  Report Type: Spontaneous
  Country: US (occurrence: None)
  Receive Date: 20140818
  Receipt Date: 20140818
  Transmission Date: 20150326
  Serious: Yes (Disabling, Other)
  Sender: FDA-Public Use
  Company Number: None

PATIENT
  Age: 32 Year
  Sex: Female
  Weight: 78.93 kg

DRUGS (1)
  1. LATUDA [Suspect]
     Active Substance: LURASIDONE HYDROCHLORIDE
     Indication: SCHIZOAFFECTIVE DISORDER
     Dosage: LATUDA HS?PERMANENT SPEAKING AND MOVER
     Route: 048

REACTIONS (5)
  - Speech disorder [None]
  - Paralysis [None]
  - Tongue paralysis [None]
  - Lip disorder [None]
  - Tardive dyskinesia [None]

NARRATIVE: CASE EVENT DATE: 20140814
